FAERS Safety Report 6299425-1 (Version None)
Quarter: 2009Q3

REPORT INFORMATION
  Report Type: 
  Country: None (occurrence: None)
  Receive Date: 20090803
  Receipt Date: 20090730
  Transmission Date: 20100115
  Serious: Yes (Life-Threatening, Other)
  Sender: FDA-Public Use
  Company Number: SP02467

PATIENT
  Age: 55 Year
  Sex: Male
  Weight: 116.1208 kg

DRUGS (4)
  1. MOVIPREP [Suspect]
     Indication: COLONOSCOPY
     Dosage: ORAL
     Route: 048
     Dates: start: 20090615, end: 20090616
  2. OSMOPREP [Suspect]
     Indication: COLONOSCOPY
     Dosage: ORAL
     Route: 048
     Dates: start: 20090708, end: 20090708
  3. VOLTAREN [Concomitant]
  4. CYTOTEC [Concomitant]

REACTIONS (6)
  - DIZZINESS [None]
  - DRUG HYPERSENSITIVITY [None]
  - EYE SWELLING [None]
  - FEELING ABNORMAL [None]
  - OCULAR HYPERAEMIA [None]
  - URTICARIA [None]
